FAERS Safety Report 4835988-8 (Version None)
Quarter: 2005Q4

REPORT INFORMATION
  Report Type: 
  Country: None (occurrence: None)
  Receive Date: 20051118
  Receipt Date: 20051102
  Transmission Date: 20060501
  Serious: Yes (Hospitalization)
  Sender: FDA-Public Use
  Company Number: DSA_27213_2005

PATIENT
  Age: 61 Year
  Sex: Male

DRUGS (9)
  1. RENIVACE [Suspect]
     Dosage: DF PO
     Route: 048
     Dates: end: 20050916
  2. ISOVORIN [Concomitant]
  3. KRESTIN [Concomitant]
  4. LENDORMIN [Concomitant]
  5. MG OXIDE [Concomitant]
  6. NORVASC [Concomitant]
  7. PREDONINE [Concomitant]
  8. FLUOROURACIL [Concomitant]
  9. ELPLAT [Concomitant]

REACTIONS (2)
  - COLON CANCER [None]
  - PLATELET COUNT DECREASED [None]
